FAERS Safety Report 6698446-4 (Version None)
Quarter: 2010Q2

REPORT INFORMATION
  Report Type: 
  Country: None (occurrence: None)
  Receive Date: 20100427
  Receipt Date: 20100417
  Transmission Date: 20101027
  Serious: Yes (Hospitalization)
  Sender: FDA-Public Use
  Company Number: US-ROCHE-698926

PATIENT
  Age: 66 Year
  Sex: Male

DRUGS (17)
  1. AVASTIN [Suspect]
     Route: 042
     Dates: start: 20090601, end: 20100209
  2. AVASTIN [Suspect]
     Route: 042
     Dates: start: 20100323
  3. CISPLATIN [Suspect]
     Dosage: FREQUENCY: 2 WEEKS, 1 OFF
     Route: 042
     Dates: start: 20090901, end: 20100216
  4. CISPLATIN [Suspect]
     Route: 042
     Dates: start: 20100323
  5. ATENOLOL [Concomitant]
  6. ATIVAN [Concomitant]
  7. COMPAZINE [Concomitant]
  8. DECADRON [Concomitant]
  9. LIPITOR [Concomitant]
  10. LIPITOR [Concomitant]
  11. LOMOTIL [Concomitant]
  12. NIASPAN [Concomitant]
  13. OMEPRAZOLE [Concomitant]
  14. PERCOCET [Concomitant]
  15. REMERON [Concomitant]
  16. VITAMIN D3 [Concomitant]
  17. ZOFRAN [Concomitant]

REACTIONS (2)
  - CONFUSIONAL STATE [None]
  - ROAD TRAFFIC ACCIDENT [None]
